FAERS Safety Report 6823171-6 (Version None)
Quarter: 2010Q3

REPORT INFORMATION
  Report Type: 
  Country: None (occurrence: None)
  Receive Date: 20100708
  Receipt Date: 20100625
  Transmission Date: 20110219
  Serious: Yes (Life-Threatening, Hospitalization, Disabling, Other)
  Sender: FDA-Public Use
  Company Number: GB-WATSON-2010-08856

PATIENT
  Age: 57 Year
  Sex: Female
  Weight: 65 kg

DRUGS (9)
  1. RAMIPRIL (WATSON LABORATORIES) [Suspect]
     Indication: HYPERTENSION
     Dosage: 2 1/2 MG, DAILY
     Route: 048
     Dates: start: 20060101, end: 20090205
  2. CITALOPRAM HYDROBROMIDE [Suspect]
     Indication: DEPRESSION
     Dosage: 20 MG, UNK
     Route: 048
     Dates: start: 20090202, end: 20090205
  3. BENDROFLUMETHIAZIDE [Suspect]
     Indication: HYPERTENSION
     Dosage: 2 1/2 MG, DAILY
     Route: 048
     Dates: start: 20050101, end: 20090205
  4. METRONIDAZOLE [Suspect]
     Indication: PROPHYLAXIS
     Dosage: 200 MG, TID
     Route: 048
     Dates: start: 20090202, end: 20090205
  5. GARLIC                             /01570501/ [Concomitant]
     Indication: PRODUCT USED FOR UNKNOWN INDICATION
  6. MAGNESIUM [Concomitant]
     Indication: PRODUCT USED FOR UNKNOWN INDICATION
  7. MENOPACE                           /01548201/ [Concomitant]
     Indication: PRODUCT USED FOR UNKNOWN INDICATION
  8. ACETAMINOPHEN [Concomitant]
     Indication: PRODUCT USED FOR UNKNOWN INDICATION
  9. OREGANO OIL [Concomitant]
     Indication: PRODUCT USED FOR UNKNOWN INDICATION

REACTIONS (9)
  - CONVULSION [None]
  - DRUG INTERACTION [None]
  - FEELING HOT [None]
  - GAIT DISTURBANCE [None]
  - HYPONATRAEMIA [None]
  - MEMORY IMPAIRMENT [None]
  - OSMOTIC DEMYELINATION SYNDROME [None]
  - THIRST [None]
  - VOMITING [None]
